FAERS Safety Report 6337642-2 (Version None)
Quarter: 2009Q3

REPORT INFORMATION
  Report Type: 
  Country: None (occurrence: None)
  Receive Date: 20090902
  Receipt Date: 20090820
  Transmission Date: 20100115
  Serious: Yes (Other)
  Sender: FDA-Public Use
  Company Number: GB-CELGENEUS-167-20484-09071441

PATIENT
  Sex: Female

DRUGS (19)
  1. INNOHEP [Suspect]
     Indication: THROMBOSIS PROPHYLAXIS
     Route: 058
     Dates: start: 20060426, end: 20060508
  2. INNOHEP [Suspect]
     Route: 058
     Dates: start: 20060509, end: 20060703
  3. INNOHEP [Suspect]
     Route: 058
     Dates: start: 20060704
  4. PARACETAMOL [Concomitant]
     Indication: URINARY TRACT INFECTION
     Route: 065
     Dates: start: 20060504, end: 20060505
  5. PARACETAMOL [Concomitant]
     Route: 065
     Dates: start: 20061010, end: 20061014
  6. CYCLIZINE [Concomitant]
     Indication: NAUSEA
     Route: 065
     Dates: start: 20060504, end: 20060504
  7. CYCLIZINE [Concomitant]
     Indication: VOMITING
     Route: 065
     Dates: start: 20060524, end: 20060526
  8. CYCLIZINE [Concomitant]
     Route: 065
     Dates: start: 20061009, end: 20061010
  9. LACTULOSE [Concomitant]
     Indication: CONSTIPATION
     Route: 065
     Dates: start: 20061009, end: 20061012
  10. CEFADROXIL [Concomitant]
     Indication: URINARY TRACT INFECTION
     Route: 065
     Dates: start: 20060505, end: 20060509
  11. CEFADROXIL [Concomitant]
     Route: 065
     Dates: start: 20061009, end: 20061011
  12. FOLIC ACID [Concomitant]
     Indication: PREGNANCY
     Route: 065
     Dates: start: 20060524, end: 20060526
  13. FOLIC ACID [Concomitant]
     Indication: ANAEMIA
     Route: 065
     Dates: start: 20061010
  14. FERROUS SULFATE TAB [Concomitant]
     Indication: ANAEMIA
     Route: 065
     Dates: start: 20061006, end: 20061009
  15. METOCLOPRAMIDE [Concomitant]
     Indication: NAUSEA
     Route: 065
     Dates: start: 20060505, end: 20060506
  16. METOCLOPRAMIDE [Concomitant]
     Indication: VOMITING
     Route: 065
     Dates: start: 20060525, end: 20060525
  17. THIAMINE HCL [Concomitant]
     Route: 065
     Dates: start: 20060525, end: 20060526
  18. STEMETIL [Concomitant]
     Indication: NAUSEA
     Route: 065
     Dates: start: 20060524, end: 20060524
  19. STEMETIL [Concomitant]
     Indication: VOMITING

REACTIONS (2)
  - ANAEMIA OF PREGNANCY [None]
  - DRUG EXPOSURE DURING PREGNANCY [None]
